FAERS Safety Report 16861679 (Version 3)
Quarter: 2020Q3

REPORT INFORMATION
  Report Type: Report from Study
  Country: CN (occurrence: CN)
  Receive Date: 20190927
  Receipt Date: 20200110
  Transmission Date: 20201105
  Serious: Yes (Hospitalization)
  Sender: FDA-Public Use
  Company Number: CN-ROCHE-2398992

PATIENT
  Age: 63 Year
  Sex: Female
  Weight: 51 kg

DRUGS (24)
  1. DOXORUBICIN [Suspect]
     Active Substance: DOXORUBICIN
     Indication: DIFFUSE LARGE B-CELL LYMPHOMA
     Dosage: DATE OF MOST RECENT DOSE OF DOXORUBICIN PRIOR TO SAE ONSET: 09/AUG/2019 (80.5 MG)
     Route: 042
     Dates: start: 20190606
  2. RAMOSETRON [Concomitant]
     Active Substance: RAMOSETRON HYDROCHLORIDE
     Route: 042
     Dates: start: 20190930, end: 20191003
  3. METHYLPREDNISOLONE. [Concomitant]
     Active Substance: METHYLPREDNISOLONE
     Route: 042
     Dates: start: 20191112, end: 20191112
  4. PREDNISONE. [Suspect]
     Active Substance: PREDNISONE
     Indication: DIFFUSE LARGE B-CELL LYMPHOMA
     Dosage: DATE OF MOST RECENT DOSE OF PREDNISONE PRIOR TO SAE ONSET: 09/AUG/2019 (100 MG)?ON DAYS 1?5 OF EVERY
     Route: 048
     Dates: start: 20190606
  5. ACETAMINOPHEN. [Concomitant]
     Active Substance: ACETAMINOPHEN
     Route: 048
     Dates: start: 20191022, end: 20191022
  6. RAMOSETRON [Concomitant]
     Active Substance: RAMOSETRON HYDROCHLORIDE
     Route: 042
     Dates: start: 20190909, end: 20190909
  7. G?CSF [Concomitant]
     Active Substance: GRANULOCYTE COLONY-STIMULATING FACTOR NOS
     Route: 058
     Dates: start: 20191003, end: 20191003
  8. PLACEBO [Suspect]
     Active Substance: UNSPECIFIED INGREDIENT
     Indication: DIFFUSE LARGE B-CELL LYMPHOMA
     Dosage: DATE OF MOST RECENT DOSE OF BLINDED VINCRISTINE PRIOR TO SAE ONSET: 09/AUG/2019
     Route: 042
     Dates: start: 20190606
  9. CYCLOPHOSPHAMIDE. [Suspect]
     Active Substance: CYCLOPHOSPHAMIDE
     Indication: DIFFUSE LARGE B-CELL LYMPHOMA
     Dosage: DATE OF MOST RECENT DOSE OF CYCLOPHOSPHAMIDE PRIOR TO SAE ONSET: 09/AUG/2019 (1207.5 MG)
     Route: 042
     Dates: start: 20190606
  10. OMEPRAZOLE. [Concomitant]
     Active Substance: OMEPRAZOLE
     Route: 042
     Dates: start: 20190909, end: 20190912
  11. ACETAMINOPHEN. [Concomitant]
     Active Substance: ACETAMINOPHEN
     Route: 048
     Dates: start: 20190909, end: 20190909
  12. POLATUZUMAB VEDOTIN. [Suspect]
     Active Substance: POLATUZUMAB VEDOTIN
     Indication: DIFFUSE LARGE B-CELL LYMPHOMA
     Dosage: DATE OF MOST RECENT DOSE OF BLINDED POLATUZUMAB VEDOTIN PRIOR TO SAE ONSET: 09/AUG/2019
     Route: 042
     Dates: start: 20190606
  13. RAMOSETRON [Concomitant]
     Active Substance: RAMOSETRON HYDROCHLORIDE
     Route: 042
     Dates: start: 20190912, end: 20190912
  14. DIPHENHYDRAMINE. [Concomitant]
     Active Substance: DIPHENHYDRAMINE
     Route: 030
     Dates: start: 20190909, end: 20190909
  15. METHYLPREDNISOLONE. [Concomitant]
     Active Substance: METHYLPREDNISOLONE
     Route: 042
     Dates: start: 20191022, end: 20191022
  16. RITUXIMAB. [Suspect]
     Active Substance: RITUXIMAB
     Indication: DIFFUSE LARGE B-CELL LYMPHOMA
     Dosage: DATE OF MOST RECENT DOSE OF RITUXIMAB PRIOR TO SAE ONSET: 09/AUG/2019 (603.75 MG)
     Route: 042
     Dates: start: 20190606
  17. OMEPRAZOLE. [Concomitant]
     Active Substance: OMEPRAZOLE
     Route: 042
     Dates: start: 20190930, end: 20191003
  18. ACETAMINOPHEN. [Concomitant]
     Active Substance: ACETAMINOPHEN
     Route: 048
     Dates: start: 20190930, end: 20190930
  19. ACETAMINOPHEN. [Concomitant]
     Active Substance: ACETAMINOPHEN
     Route: 048
     Dates: start: 20191112, end: 20191112
  20. DIPHENHYDRAMINE. [Concomitant]
     Active Substance: DIPHENHYDRAMINE
     Route: 030
     Dates: start: 20191022, end: 20191022
  21. DIPHENHYDRAMINE. [Concomitant]
     Active Substance: DIPHENHYDRAMINE
     Route: 030
     Dates: start: 20191112, end: 20191112
  22. G?CSF [Concomitant]
     Active Substance: GRANULOCYTE COLONY-STIMULATING FACTOR NOS
     Route: 058
     Dates: start: 20190911, end: 20190911
  23. DIPHENHYDRAMINE. [Concomitant]
     Active Substance: DIPHENHYDRAMINE
     Route: 030
     Dates: start: 20190930, end: 20190930
  24. LIDOCAINE. [Concomitant]
     Active Substance: LIDOCAINE
     Route: 061
     Dates: start: 20190930, end: 20190930

REACTIONS (1)
  - Venous thrombosis [Recovering/Resolving]

NARRATIVE: CASE EVENT DATE: 20190828
